FAERS Safety Report 13792624 (Version 1)
Quarter: 2017Q3

REPORT INFORMATION
  Report Type: Spontaneous
  Country: JP (occurrence: JP)
  Receive Date: 20170726
  Receipt Date: 20170726
  Transmission Date: 20171127
  Serious: Yes (Life-Threatening)
  Sender: FDA-Public Use
  Company Number: JP-PFIZER INC-2017314898

PATIENT
  Age: 54 Year
  Sex: Female

DRUGS (6)
  1. MERCAPTOPURINE. [Concomitant]
     Active Substance: MERCAPTOPURINE
     Indication: ACUTE MYELOID LEUKAEMIA
     Dosage: UNK
  2. IDARUBICIN [Concomitant]
     Active Substance: IDARUBICIN
     Indication: ACUTE MYELOID LEUKAEMIA
     Dosage: UNK
  3. ENOCITABINE [Concomitant]
     Active Substance: ENOCITABINE
     Indication: ACUTE MYELOID LEUKAEMIA
     Dosage: UNK, CYCLIC (2 CYCLES)
  4. PREDNISOLONE. [Concomitant]
     Active Substance: PREDNISOLONE
     Indication: ACUTE MYELOID LEUKAEMIA
     Dosage: UNK
  5. VORICONAZOLE. [Suspect]
     Active Substance: VORICONAZOLE
     Indication: ANTIFUNGAL PROPHYLAXIS
     Dosage: 400 MG/DAY
  6. CYTARABINE. [Concomitant]
     Active Substance: CYTARABINE
     Indication: ACUTE MYELOID LEUKAEMIA
     Dosage: UNK (HIGH-DOSE)

REACTIONS (1)
  - Mucormycosis [Recovered/Resolved]
